FAERS Safety Report 10449498 (Version 2)
Quarter: 2014Q3

REPORT INFORMATION
  Report Type: Spontaneous
  Country: IN (occurrence: IN)
  Receive Date: 20140912
  Receipt Date: 20140912
  Transmission Date: 20150326
  Serious: Yes (Other)
  Sender: FDA-Public Use
  Company Number: IN-SA-2014SA117675

PATIENT
  Age: 34 Year
  Sex: Male

DRUGS (2)
  1. CLOMIFENE CITRATE [Suspect]
     Active Substance: CLOMIPHENE
     Indication: OLIGOSPERMIA
     Dosage: THREE TIMES A WEEK
     Route: 065
  2. LITHIUM CARBONATE. [Concomitant]
     Active Substance: LITHIUM CARBONATE
     Indication: BIPOLAR DISORDER

REACTIONS (9)
  - Grandiosity [Recovered/Resolved]
  - Off label use [Unknown]
  - Self esteem inflated [Recovered/Resolved]
  - Mania [Recovered/Resolved]
  - Libido increased [Recovered/Resolved]
  - Euphoric mood [Recovered/Resolved]
  - Logorrhoea [Recovered/Resolved]
  - Insomnia [Recovered/Resolved]
  - Psychomotor hyperactivity [Recovered/Resolved]
